FAERS Safety Report 5319751-X (Version None)
Quarter: 2007Q2

REPORT INFORMATION
  Report Type: 
  Country: None (occurrence: None)
  Receive Date: 20070502
  Receipt Date: 20070416
  Transmission Date: 20071010
  Serious: Yes (Hospitalization)
  Sender: FDA-Public Use
  Company Number: 2007JP001421

PATIENT
  Age: 63 Year
  Sex: Male
  Weight: 63.5 kg

DRUGS (8)
  1. PROGRAF [Suspect]
     Indication: STEM CELL TRANSPLANT
     Dosage: 1.2 MG, CONTINUOUS, IV DRIP
     Route: 041
     Dates: start: 20050414
  2. ACYCLOVIR (ACICLOVIR) INJECTION [Concomitant]
  3. METHOTREXATE FORMULATION [Concomitant]
  4. FLUDARA [Concomitant]
  5. ALKERAN [Concomitant]
  6. DIFLUCAN [Concomitant]
  7. DIFLUCAN [Concomitant]
  8. NEUTROGIN (LENOGRASTIM) INJECTION [Concomitant]

REACTIONS (7)
  - ALPHA HAEMOLYTIC STREPTOCOCCAL INFECTION [None]
  - CYTOMEGALOVIRUS CHORIORETINITIS [None]
  - CYTOMEGALOVIRUS INFECTION [None]
  - HUMAN HERPESVIRUS 6 INFECTION [None]
  - INFECTION IN AN IMMUNOCOMPROMISED HOST [None]
  - MENINGITIS BACTERIAL [None]
  - WHITE BLOOD CELL COUNT DECREASED [None]
